FAERS Safety Report 8728702 (Version 2)
Quarter: 2012Q4

REPORT INFORMATION
  Report Type: Report from Study
  Country: DE (occurrence: DE)
  Receive Date: 20120817
  Receipt Date: 20120911
  Transmission Date: 20130627
  Serious: Yes (Other)
  Sender: FDA-Public Use
  Company Number: PHHO2012DE011946

PATIENT
  Age: 39 Year
  Sex: Male

DRUGS (2)
  1. AMN107 [Suspect]
     Indication: CHRONIC MYELOID LEUKAEMIA
     Dosage: 800 mg, QD
     Route: 048
     Dates: start: 20120127, end: 20120615
  2. AMN107 [Suspect]
     Dosage: UNK
     Route: 048
     Dates: start: 20120820

REACTIONS (1)
  - Blood creatine phosphokinase increased [Recovered/Resolved]
